FAERS Safety Report 21126048 (Version 1)
Quarter: 2022Q3

REPORT INFORMATION
  Report Type: Spontaneous
  Country: US (occurrence: None)
  Receive Date: 20220723
  Receipt Date: 20220723
  Transmission Date: 20221026
  Serious: Yes (Other)
  Sender: FDA-Public Use
  Company Number: None

PATIENT
  Age: 36 Year
  Sex: Female
  Weight: 74.25 kg

DRUGS (2)
  1. REMICADE [Suspect]
     Active Substance: INFLIXIMAB
     Indication: Rheumatoid arthritis
     Dosage: OTHER FREQUENCY : Q6W;?
     Route: 042
     Dates: start: 20220723, end: 20220723
  2. REMICADE [Concomitant]
     Active Substance: INFLIXIMAB
     Dates: start: 20220723, end: 20220723

REACTIONS (5)
  - Urticaria [None]
  - Erythema [None]
  - Pruritus [None]
  - Infusion related reaction [None]
  - Rash pruritic [None]

NARRATIVE: CASE EVENT DATE: 20220723
